FAERS Safety Report 5220687-3 (Version None)
Quarter: 2007Q1

REPORT INFORMATION
  Report Type: 
  Country: None (occurrence: None)
  Receive Date: 20070123
  Receipt Date: 20070109
  Transmission Date: 20070707
  Serious: Yes (Other)
  Sender: FDA-Public Use
  Company Number: 070111-0000015

PATIENT

DRUGS (7)
  1. MECHLORETHAMINE HYDROCHLORIDE (MECHLORETHAMINE HC1) [Suspect]
     Indication: HODGKIN'S DISEASE
     Dosage: 6 MG/M2; DAY 1; IV
     Route: 042
  2. VINCRISTINE [Suspect]
     Indication: HODGKIN'S DISEASE
     Dosage: 1.5 MG/M2; ON DAY 1; IV
     Route: 042
  3. PROCARBAZINE (PROCARBAZINE) [Suspect]
     Indication: HODGKIN'S DISEASE
     Dosage: 100 MG/M2; DAY 1-7; PO
     Route: 048
  4. PREDNISONE TAB [Suspect]
     Indication: HODGKIN'S DISEASE
     Dosage: 40 MG/M2;DAT 1-14; PO
     Route: 048
  5. DOXORUBICIN HCL [Suspect]
     Indication: HODGKIN'S DISEASE
     Dosage: 35 MG/M2;DAY 8; IV
     Route: 042
  6. BLEOMYCIN [Suspect]
     Indication: HODGKIN'S DISEASE
     Dosage: 10 U./M2; DAY 8; IV
     Route: 042
  7. VINBLASTINE SULFATE [Suspect]
     Indication: HODGKIN'S DISEASE
     Dosage: 6 MG/M2;DAY 8; IV
     Route: 042

REACTIONS (1)
  - VENOUS THROMBOSIS [None]
